FAERS Safety Report 25336246 (Version 2)
Quarter: 2025Q2

REPORT INFORMATION
  Report Type: Spontaneous
  Country: AU (occurrence: AU)
  Receive Date: 20250520
  Receipt Date: 20250611
  Transmission Date: 20250716
  Serious: Yes (Death, Hospitalization, Disabling, Other)
  Sender: PFIZER
  Company Number: AU-PFIZER INC-PV202500058931

PATIENT
  Age: 39 Year
  Sex: Female
  Weight: 63 kg

DRUGS (1)
  1. PRISTIQ EXTENDED-RELEASE [Suspect]
     Active Substance: DESVENLAFAXINE SUCCINATE
     Indication: Depression
     Dosage: 100 MG, 1X/DAY
     Route: 048
     Dates: start: 2011

REACTIONS (16)
  - Completed suicide [Fatal]
  - Condition aggravated [Fatal]
  - Transient ischaemic attack [Fatal]
  - Anosognosia [Fatal]
  - Irritability [Fatal]
  - Depressive symptom [Fatal]
  - Aggression [Not Recovered/Not Resolved]
  - Vision blurred [Unknown]
  - Headache [Unknown]
  - Nausea [Unknown]
  - Abnormal dreams [Unknown]
  - Amnesia [Unknown]
  - Promiscuity [Unknown]
  - Hypoaesthesia [Unknown]
  - Rash [Unknown]
  - Swelling face [Unknown]

NARRATIVE: CASE EVENT DATE: 20110101
